FAERS Safety Report 10983596 (Version 3)
Quarter: 2015Q2

REPORT INFORMATION
  Report Type: Spontaneous
  Country: US (occurrence: US)
  Receive Date: 20150403
  Receipt Date: 20150423
  Transmission Date: 20150821
  Serious: No
  Sender: FDA-Public Use
  Company Number: US-ROXANE LABORATORIES, INC.-2015-RO-00589RO

PATIENT
  Sex: Female
  Weight: 94 kg

DRUGS (5)
  1. ZANTAC [Concomitant]
     Active Substance: RANITIDINE HYDROCHLORIDE
     Indication: GASTROOESOPHAGEAL REFLUX DISEASE
     Route: 065
  2. TOPROL XL [Concomitant]
     Active Substance: METOPROLOL SUCCINATE
     Indication: BLOOD PRESSURE
     Dosage: 100 MG
     Route: 065
  3. EXEMESTANE. [Suspect]
     Active Substance: EXEMESTANE
     Indication: BREAST CANCER
     Dosage: 25 MG
     Route: 065
     Dates: start: 201408
  4. APRISO [Concomitant]
     Active Substance: MESALAMINE
     Indication: COLITIS
     Route: 065
  5. PREVACID [Concomitant]
     Active Substance: LANSOPRAZOLE
     Indication: GASTROOESOPHAGEAL REFLUX DISEASE
     Route: 065

REACTIONS (6)
  - Cough [Recovered/Resolved]
  - Abdominal distension [Recovered/Resolved]
  - Pain in extremity [Recovered/Resolved]
  - Back pain [Recovered/Resolved]
  - Headache [Recovered/Resolved]
  - Arthralgia [Recovered/Resolved]

NARRATIVE: CASE EVENT DATE: 2015
